FAERS Safety Report 4417710-2 (Version None)
Quarter: 2004Q3

REPORT INFORMATION
  Report Type: 
  Country: None (occurrence: None)
  Receive Date: 20040803
  Receipt Date: 20040720
  Transmission Date: 20050211
  Serious: Yes (Hospitalization)
  Sender: FDA-Public Use
  Company Number: CERZ-10619

PATIENT
  Sex: Female

DRUGS (2)
  1. CEREZYME [Suspect]
     Indication: GAUCHER'S DISEASE
     Dosage: 3000 UNITS Q2WKS IV
     Route: 042
     Dates: start: 19940101, end: 20040701
  2. CEREZYME [Suspect]
     Indication: GAUCHER'S DISEASE
     Dates: start: 20040101

REACTIONS (2)
  - ARTHRALGIA [None]
  - BONE PAIN [None]
